FAERS Safety Report 4844947-0 (Version None)
Quarter: 2005Q4

REPORT INFORMATION
  Report Type: 
  Country: None (occurrence: None)
  Receive Date: 20051128
  Receipt Date: 20051111
  Transmission Date: 20060501
  Serious: Yes (Life-Threatening)
  Sender: FDA-Public Use
  Company Number: GXKR2005JP01757

PATIENT
  Age: 69 Year
  Sex: Male

DRUGS (2)
  1. RIMACTANE (RIFAMPCIIN) [Suspect]
     Indication: PULMONARY TUBERCULOSIS
     Dosage: ORAL
     Route: 048
     Dates: start: 20041119, end: 20050120
  2. AMIODARONE HCL [Suspect]
     Indication: VENTRICULAR TACHYCARDIA
     Dosage: 200 MG, ORAL
     Route: 048
     Dates: start: 20041015

REACTIONS (5)
  - DRUG INTERACTION [None]
  - DRUG LEVEL DECREASED [None]
  - FALL [None]
  - SHOCK [None]
  - VENTRICULAR TACHYCARDIA [None]
